FAERS Safety Report 20962002 (Version 1)
Quarter: 2022Q2

REPORT INFORMATION
  Report Type: Spontaneous
  Country: US (occurrence: None)
  Receive Date: 20220615
  Receipt Date: 20220615
  Transmission Date: 20220720
  Serious: No
  Sender: FDA-Public Use
  Company Number: US-MDD US Operations-MDD202203-000390

PATIENT
  Sex: Male

DRUGS (1)
  1. APOKYN [Suspect]
     Active Substance: APOMORPHINE HYDROCHLORIDE
     Indication: Product used for unknown indication
     Dosage: HE WAS TAKING 0.3 DOSES, AND HE WAS ALLOWED TO TAKE 0.4 DOSE

REACTIONS (3)
  - Abnormal behaviour [Unknown]
  - Yawning [Unknown]
  - Somnolence [Unknown]
